FAERS Safety Report 6682519-6 (Version None)
Quarter: 2010Q2

REPORT INFORMATION
  Report Type: 
  Country: None (occurrence: None)
  Receive Date: 20100415
  Receipt Date: 20100407
  Transmission Date: 20101027
  Serious: Yes (Hospitalization)
  Sender: FDA-Public Use
  Company Number: FR-KINGPHARMUSA00001-K201000051

PATIENT
  Age: 65 Year
  Sex: Male

DRUGS (11)
  1. ALTACE [Suspect]
     Dosage: UNK
     Route: 048
  2. KETOPROFEN [Suspect]
     Indication: PROCEDURAL PAIN
     Dosage: 2 U, QD
     Route: 048
     Dates: start: 20090210, end: 20090218
  3. GLUCOPHAGE [Suspect]
     Indication: TYPE 2 DIABETES MELLITUS
     Dosage: 1000 MG, TID
     Route: 048
     Dates: end: 20090217
  4. XENETIX [Suspect]
     Indication: SCAN WITH CONTRAST
     Dosage: 300 MG/5ML, SINGLE
     Dates: start: 20090218, end: 20090218
  5. ISOPTIN [Concomitant]
  6. TAHOR [Concomitant]
  7. APROVEL [Concomitant]
  8. ESIDRIX [Concomitant]
  9. UMULINE [Concomitant]
  10. HUMALOG [Concomitant]
  11. NORFLOXACIN [Concomitant]

REACTIONS (21)
  - ANOXIA [None]
  - AZOTAEMIA [None]
  - BLOOD CREATININE INCREASED [None]
  - BLOOD LACTIC ACID INCREASED [None]
  - BLOOD PH DECREASED [None]
  - DEHYDRATION [None]
  - DEPRESSED LEVEL OF CONSCIOUSNESS [None]
  - DRUG INTERACTION [None]
  - DYSPNOEA [None]
  - HAEMODYNAMIC INSTABILITY [None]
  - HYPERKALAEMIA [None]
  - HYPOTENSION [None]
  - LACTIC ACIDOSIS [None]
  - LIVEDO RETICULARIS [None]
  - PULMONARY EMBOLISM [None]
  - RENAL FAILURE ACUTE [None]
  - RESPIRATORY DISTRESS [None]
  - TACHYCARDIA [None]
  - URINARY TRACT INFECTION ENTEROCOCCAL [None]
  - UROSEPSIS [None]
  - VOMITING [None]
